FAERS Safety Report 24088874 (Version 1)
Quarter: 2024Q3

REPORT INFORMATION
  Report Type: Report from Study
  Country: US (occurrence: None)
  Receive Date: 20240715
  Receipt Date: 20240715
  Transmission Date: 20241017
  Serious: Yes (Death)
  Sender: ASTRAZENECA
  Company Number: 2024A158586

PATIENT
  Sex: Female

DRUGS (1)
  1. LYNPARZA [Suspect]
     Active Substance: OLAPARIB
     Dosage: TAKE 2 TABLETS BY MOUTH TWICE A DAY FOR 1 WEEK (DAYS 1-7) THEN OFF FOR 2 WEEKS (DAYS 8-21)
     Route: 048

REACTIONS (1)
  - Death [Fatal]
